FAERS Safety Report 8233980-7 (Version None)
Quarter: 2012Q1

REPORT INFORMATION
  Report Type: 
  Country: None (occurrence: None)
  Receive Date: 20120323
  Receipt Date: 20120323
  Transmission Date: 20120608
  Serious: No
  Sender: FDA-Public Use
  Company Number: None

PATIENT
  Sex: Male
  Weight: 79 kg

DRUGS (1)
  1. INTRON A [Suspect]
     Dosage: 40 MU
     Dates: end: 20120321

REACTIONS (2)
  - LEUKOPENIA [None]
  - NEUTROPENIA [None]
